FAERS Safety Report 7002859-0 (Version None)
Quarter: 2010Q3

REPORT INFORMATION
  Report Type: 
  Country: None (occurrence: None)
  Receive Date: 20100920
  Receipt Date: 20070924
  Transmission Date: 20110219
  Serious: Yes (Hospitalization)
  Sender: FDA-Public Use
  Company Number: US-ASTRAZENECA-2006UW25399

PATIENT
  Age: 381 Month
  Sex: Female
  Weight: 153 kg

DRUGS (17)
  1. SEROQUEL [Suspect]
     Indication: DEPRESSION
     Route: 048
     Dates: start: 20010101, end: 20060101
  2. SEROQUEL [Suspect]
     Indication: ANXIETY
     Route: 048
     Dates: start: 20010101, end: 20060101
  3. SEROQUEL [Suspect]
     Indication: SLEEP DISORDER
     Route: 048
     Dates: start: 20010101, end: 20060101
  4. SEROQUEL [Suspect]
     Dosage: 25-100 MG
     Route: 048
     Dates: start: 20021107
  5. SEROQUEL [Suspect]
     Dosage: 25-100 MG
     Route: 048
     Dates: start: 20021107
  6. SEROQUEL [Suspect]
     Dosage: 25-100 MG
     Route: 048
     Dates: start: 20021107
  7. ABILIFY [Concomitant]
     Dates: start: 20060101
  8. DEXATRIM [Concomitant]
     Indication: WEIGHT CONTROL
  9. ZOCOR [Concomitant]
     Indication: BLOOD CHOLESTEROL INCREASED
     Dosage: 10-20 MG
     Route: 048
     Dates: start: 20050929
  10. DEPAKOTE ER [Concomitant]
     Indication: BIPOLAR DISORDER
     Route: 048
     Dates: start: 20020729
  11. FLUOXETINE [Concomitant]
     Dosage: 20-40 MG
     Route: 048
     Dates: start: 20020212
  12. LITHIUM CARBONATE [Concomitant]
     Route: 048
     Dates: start: 20030407
  13. CLONAZEPAM [Concomitant]
     Route: 048
     Dates: start: 20050915
  14. ASPIRIN [Concomitant]
     Dosage: 150-375 MG
     Route: 048
     Dates: start: 20050523
  15. PROPRANOLOL [Concomitant]
     Indication: HYPERTENSION
     Route: 048
     Dates: start: 20051014
  16. PAXIL [Concomitant]
     Indication: DEPRESSION
     Dosage: 20-40 MG
     Route: 048
     Dates: start: 20011018
  17. WELLBUTRIN [Concomitant]
     Indication: DEPRESSION
     Dosage: 150-200 MG
     Route: 048
     Dates: start: 20020201

REACTIONS (5)
  - DIABETES MELLITUS [None]
  - DIABETES MELLITUS INADEQUATE CONTROL [None]
  - HYPERGLYCAEMIA [None]
  - TYPE 1 DIABETES MELLITUS [None]
  - TYPE 2 DIABETES MELLITUS [None]
